FAERS Safety Report 14797671 (Version 2)
Quarter: 2022Q3

REPORT INFORMATION
  Report Type: Other
  Country: IT (occurrence: None)
  Receive Date: 20180424
  Receipt Date: 20220826
  Transmission Date: 20221027
  Serious: Yes (Hospitalization)
  Sender: FDA-Public Use
  Company Number: IT-INVENTIA-000215

PATIENT
  Age: 70 Year
  Sex: Female

DRUGS (3)
  1. PALIPERIDONE [Suspect]
     Active Substance: PALIPERIDONE
     Indication: Delusion of parasitosis
     Dosage: 75 MG
     Route: 030
  2. PALIPERIDONE [Suspect]
     Active Substance: PALIPERIDONE
     Indication: Delusion of parasitosis
     Dosage: 100 MG
     Route: 030
  3. PALIPERIDONE [Suspect]
     Active Substance: PALIPERIDONE
     Indication: Delusion of parasitosis
     Dosage: 150 MG
     Route: 030

REACTIONS (7)
  - Condition aggravated [Recovered/Resolved]
  - Psychomotor retardation [Recovered/Resolved]
  - Psychomotor skills impaired [Recovered/Resolved]
  - Blunted affect [Recovered/Resolved]
  - Mental status changes [Recovered/Resolved]
  - Parkinsonism [Unknown]
  - Extrapyramidal disorder [Unknown]
